FAERS Safety Report 4606798-1 (Version None)
Quarter: 2005Q1

REPORT INFORMATION
  Report Type: 
  Country: None (occurrence: None)
  Receive Date: 20050314
  Receipt Date: 20050222
  Transmission Date: 20050727
  Serious: Yes (Hospitalization)
  Sender: FDA-Public Use
  Company Number: JP-BRISTOL-MYERS SQUIBB COMPANY-12878344

PATIENT
  Age: 77 Year
  Sex: Male

DRUGS (4)
  1. GATIFLO TABS 100 MG [Suspect]
     Indication: NASOPHARYNGITIS
     Route: 048
     Dates: start: 20050204, end: 20050209
  2. PELEX [Suspect]
     Indication: NASOPHARYNGITIS
     Route: 048
     Dates: start: 20050204, end: 20050209
  3. NICHOLASE [Suspect]
     Indication: NASOPHARYNGITIS
     Route: 048
     Dates: start: 20050204, end: 20050209
  4. MEDICON [Suspect]
     Indication: NASOPHARYNGITIS
     Route: 048
     Dates: start: 20050204, end: 20050209

REACTIONS (2)
  - BLOOD CREATININE INCREASED [None]
  - MYOCLONUS [None]
